FAERS Safety Report 8780947 (Version 1)
Quarter: 2012Q4

REPORT INFORMATION
  Report Type: Report from Study
  Country: US (occurrence: US)
  Receive Date: 20120913
  Receipt Date: 20120913
  Transmission Date: 20130627
  Serious: No
  Sender: FDA-Public Use
  Company Number: US-VERTEX PHARMACEUTICAL INC.-AE-2012-008170

PATIENT

DRUGS (6)
  1. INCIVEK [Suspect]
     Indication: HEPATITIS C
     Route: 048
     Dates: start: 20120511
  2. REBECTOL [Concomitant]
     Indication: HEPATITIS C
     Route: 048
     Dates: start: 20120511
  3. PEGASYS [Concomitant]
     Indication: HEPATITIS C
     Route: 058
     Dates: start: 20120511
  4. PRILOSEC [Concomitant]
     Route: 048
  5. LISINOPRIL [Concomitant]
     Route: 048
  6. ZOLOFT [Concomitant]
     Route: 048
     Dates: start: 20120511

REACTIONS (2)
  - Abdominal pain upper [Not Recovered/Not Resolved]
  - Fatigue [Not Recovered/Not Resolved]
